FAERS Safety Report 6127927-7 (Version None)
Quarter: 2009Q1

REPORT INFORMATION
  Report Type: 
  Country: None (occurrence: None)
  Receive Date: 20090323
  Receipt Date: 20090312
  Transmission Date: 20090719
  Serious: Yes (Other)
  Sender: FDA-Public Use
  Company Number: IT-ASTRAZENECA-2008SE03529

PATIENT
  Age: 22409 Day
  Sex: Male

DRUGS (3)
  1. FOSCAVIR [Suspect]
     Indication: CYTOMEGALOVIRUS INFECTION
     Dosage: 6 G / THREE WEEKS
     Route: 042
     Dates: start: 20041015, end: 20041208
  2. CYCLOSPORINE [Concomitant]
     Indication: LIVER TRANSPLANT
  3. TAVOR [Concomitant]
     Indication: TINNITUS

REACTIONS (8)
  - AGEUSIA [None]
  - AMNESIA [None]
  - ANOSMIA [None]
  - COLOUR BLINDNESS [None]
  - NERVOUSNESS [None]
  - SUICIDE ATTEMPT [None]
  - TINNITUS [None]
  - VISUAL IMPAIRMENT [None]
